FAERS Safety Report 16701834 (Version 1)
Quarter: 2019Q3

REPORT INFORMATION
  Report Type: Report from Study
  Country: GB (occurrence: GB)
  Receive Date: 20190814
  Receipt Date: 20190814
  Transmission Date: 20191004
  Serious: Yes (Other)
  Sender: FDA-Public Use
  Company Number: GB-AMGEN-GBRSL2019124123

PATIENT
  Age: 62 Year
  Sex: Male

DRUGS (1)
  1. SINGLE DOSE PREFILLED AUTOINJECTOR(AMGEVITA) [Suspect]
     Active Substance: ADALIMUMAB
     Indication: CROHN^S DISEASE
     Dosage: 40 MILLIGRAM, Q2WK
     Route: 058
     Dates: start: 20190423

REACTIONS (2)
  - Crohn^s disease [Unknown]
  - Device failure [Unknown]

NARRATIVE: CASE EVENT DATE: 2019
